FAERS Safety Report 8175952-7 (Version None)
Quarter: 2012Q1

REPORT INFORMATION
  Report Type: 
  Country: None (occurrence: None)
  Receive Date: 20120301
  Receipt Date: 20120223
  Transmission Date: 20120608
  Serious: No
  Sender: FDA-Public Use
  Company Number: US-PFIZER INC-2012049189

PATIENT

DRUGS (2)
  1. GABAPENTIN [Suspect]
     Indication: PANIC ATTACK
     Dosage: 300 MG, 3X/DAY
  2. GABAPENTIN [Suspect]
     Indication: SLEEP DISORDER
     Dosage: 400 MG, 3X/DAY (ONE 300 MG CAPSULE AND ONE 100 MG CAPSULE)

REACTIONS (3)
  - DYSURIA [None]
  - BLOOD PH INCREASED [None]
  - BURNING SENSATION [None]
